FAERS Safety Report 5465357-1 (Version None)
Quarter: 2007Q3

REPORT INFORMATION
  Report Type: 
  Country: None (occurrence: None)
  Receive Date: 20070920
  Receipt Date: 20070920
  Transmission Date: 20080115
  Serious: Yes (Life-Threatening)
  Sender: FDA-Public Use
  Company Number: None

PATIENT
  Age: 49 Year
  Sex: Female
  Weight: 80.7403 kg

DRUGS (5)
  1. COPAXONE [Suspect]
     Indication: MULTIPLE SCLEROSIS
     Dates: start: 20020101, end: 20070201
  2. PREMARIN [Concomitant]
  3. IBUPROFEN [Concomitant]
  4. PAXIL [Concomitant]
  5. MIDRIN [Concomitant]

REACTIONS (1)
  - LUNG NEOPLASM MALIGNANT [None]
